FAERS Safety Report 4525942-8 (Version None)
Quarter: 2004Q4

REPORT INFORMATION
  Report Type: 
  Country: None (occurrence: None)
  Receive Date: 20041124
  Receipt Date: 20040617
  Transmission Date: 20050328
  Serious: Yes (Hospitalization, Other)
  Sender: FDA-Public Use
  Company Number: 2004041205

PATIENT
  Age: 53 Year
  Sex: Female

DRUGS (6)
  1. TIKOSYN [Suspect]
     Indication: ATRIAL FIBRILLATION
     Dosage: 1000 MCG (500 MCG, 2 IN 1 D) , ORAL
     Route: 048
     Dates: start: 20040615
  2. WARFARIN SODIUM [Concomitant]
  3. HEPARIN-FRACTION, SODIUM SALT (HEPARIN FRACTION, SODIUM SALT) [Concomitant]
  4. MULTIVITAMINS (ASCORBIC ACID, ERGOCALCIFEROL, FOLIC ACID, NICOTINAMIDE [Concomitant]
  5. PROPAFENONE HCL [Concomitant]
  6. PROTEIN SUPPLEMENTS (PROTEIN SUPPLEMENTS) [Concomitant]

REACTIONS (3)
  - ATRIAL FIBRILLATION [None]
  - ELECTROCARDIOGRAM QT CORRECTED INTERVAL PROLONGED [None]
  - VENTRICULAR TACHYCARDIA [None]
